FAERS Safety Report 4506147-3 (Version None)
Quarter: 2004Q4

REPORT INFORMATION
  Report Type: 
  Country: None (occurrence: None)
  Receive Date: 20041025
  Receipt Date: 20040419
  Transmission Date: 20050328
  Serious: Yes (Other)
  Sender: FDA-Public Use
  Company Number: US-JNJFOC-20040404175

PATIENT
  Sex: Female

DRUGS (1)
  1. REMICADE [Suspect]
     Indication: CROHN'S DISEASE
     Dosage: THIS WAS PATIENT'S SECOND DOSE SEE IMAGE
     Dates: start: 20040415

REACTIONS (1)
  - ANAPHYLACTIC REACTION [None]
